FAERS Safety Report 7580320-2 (Version None)
Quarter: 2011Q2

REPORT INFORMATION
  Report Type: 
  Country: None (occurrence: None)
  Receive Date: 20110622
  Receipt Date: 20110609
  Transmission Date: 20111010
  Serious: Yes (Hospitalization)
  Sender: FDA-Public Use
  Company Number: DSM-2011-00599

PATIENT
  Age: 75 Year
  Sex: Female

DRUGS (6)
  1. TEGRETOL [Concomitant]
  2. TOLVON (MIANSERIN HYDROCHLORIDE) (MIANSERIN HYDROCHLORIDE) [Concomitant]
  3. KALETRA (RITONAVIR, LOPINAVIR) (RITONAVIR, LOPINAVIR) [Concomitant]
  4. KEPPRA [Concomitant]
  5. VOTUM PLUS (HYDROCHLOROTHIAZIDE, OLMESARTAN MEDOXOMIL) (TABLET) (HYDRO [Suspect]
     Indication: HYPERTENSION
     Dosage: 20 MG OLMESARTAN PER DAY (HCT DOSE NOT REPORTED),ORAL
     Route: 048
     Dates: start: 20101224, end: 20101225
  6. KIVEXA (LAMIVUDINE, ABACAVIR SULFATE) (LAMIVUDINE, ABACAVIR SULFATE) [Concomitant]

REACTIONS (3)
  - PRESYNCOPE [None]
  - ORTHOSTATIC HYPOTENSION [None]
  - VERTIGO [None]
